FAERS Safety Report 10232933 (Version 1)
Quarter: 2014Q2

REPORT INFORMATION
  Report Type: Spontaneous
  Country: US (occurrence: None)
  Receive Date: 20140611
  Receipt Date: 20140611
  Transmission Date: 20141212
  Serious: Yes (Hospitalization)
  Sender: FDA-Public Use
  Company Number: None

PATIENT
  Age: 37 Year
  Sex: Female
  Weight: 49.4 kg

DRUGS (2)
  1. METHIMAZOLE [Suspect]
     Indication: BASEDOW^S DISEASE
     Dosage: 1, TID, ORAL
     Route: 048
     Dates: start: 20130712, end: 20140609
  2. IBUPROFEN [Concomitant]

REACTIONS (2)
  - Oropharyngeal pain [None]
  - White blood cell count decreased [None]
